FAERS Safety Report 15279509 (Version 4)
Quarter: 2019Q1

REPORT INFORMATION
  Report Type: Spontaneous
  Country: US (occurrence: US)
  Receive Date: 20180815
  Receipt Date: 20190108
  Transmission Date: 20190417
  Serious: Yes (Hospitalization)
  Sender: FDA-Public Use
  Company Number: US-PFIZER INC-2018323935

PATIENT
  Age: 39 Year
  Weight: 106.5 kg

DRUGS (3)
  1. SOMAVERT [Suspect]
     Active Substance: PEGVISOMANT
     Dosage: 20 MG, DAILY
     Dates: start: 20180925
  2. SOMAVERT [Suspect]
     Active Substance: PEGVISOMANT
     Dosage: 30 MG, DAILY
  3. SOMAVERT [Suspect]
     Active Substance: PEGVISOMANT
     Indication: ACROMEGALY
     Dosage: 20 MG, DAILY
     Dates: end: 2012

REACTIONS (8)
  - Eating disorder [Unknown]
  - Thyroxine decreased [Unknown]
  - Mental disorder [Unknown]
  - Weight decreased [Unknown]
  - Bedridden [Unknown]
  - Drug ineffective [Not Recovered/Not Resolved]
  - Insulin-like growth factor increased [Unknown]
  - Cortisol decreased [Unknown]

NARRATIVE: CASE EVENT DATE: 20180727
